FAERS Safety Report 8007423-2 (Version None)
Quarter: 2011Q4

REPORT INFORMATION
  Report Type: 
  Country: None (occurrence: None)
  Receive Date: 20111227
  Receipt Date: 20111213
  Transmission Date: 20120403
  Serious: Yes (Other)
  Sender: FDA-Public Use
  Company Number: DE-ELI_LILLY_AND_COMPANY-DE201112003697

PATIENT
  Age: 82 Year
  Sex: Female

DRUGS (3)
  1. FORTEO [Suspect]
     Indication: OSTEOPOROSIS
     Dosage: UNK, QD
     Route: 058
     Dates: start: 20110114
  2. ANTIHYPERTENSIVES [Concomitant]
  3. DEKRISTOL [Concomitant]
     Dosage: 3 DF, WEEKLY (1/W)

REACTIONS (2)
  - HEART VALVE CALCIFICATION [None]
  - DYSPNOEA [None]
